FAERS Safety Report 7977831-4 (Version None)
Quarter: 2011Q4

REPORT INFORMATION
  Report Type: 
  Country: None (occurrence: None)
  Receive Date: 20111214
  Receipt Date: 20111201
  Transmission Date: 20120403
  Serious: Yes (Hospitalization, Other)
  Sender: FDA-Public Use
  Company Number: US-AMGEN-USASP2011012783

PATIENT
  Age: 48 Year
  Sex: Female

DRUGS (4)
  1. ENBREL [Suspect]
     Indication: SPINAL OSTEOARTHRITIS
     Dosage: UNK
     Dates: end: 20110101
  2. ENBREL [Suspect]
     Indication: MIGRAINE
     Dates: end: 20050101
  3. ENBREL [Suspect]
     Indication: MUSCLE SPASMS
  4. ENBREL [Suspect]
     Indication: PAIN
     Dates: end: 20050101

REACTIONS (19)
  - AMNESIA [None]
  - INTERVERTEBRAL DISC COMPRESSION [None]
  - STRESS [None]
  - MUSCLE SPASMS [None]
  - MULTIPLE SCLEROSIS [None]
  - MIGRAINE [None]
  - JOINT RANGE OF MOTION DECREASED [None]
  - VISUAL IMPAIRMENT [None]
  - SPINAL CORD COMPRESSION [None]
  - NECK PAIN [None]
  - PAIN [None]
  - PERIPHERAL COLDNESS [None]
  - APHONIA [None]
  - FEELING HOT [None]
  - VOMITING [None]
  - THERAPEUTIC RESPONSE DECREASED [None]
  - POSTURAL REFLEX IMPAIRMENT [None]
  - HYPOAESTHESIA [None]
  - SPINAL OSTEOARTHRITIS [None]
